FAERS Safety Report 24322034 (Version 1)
Quarter: 2024Q3

REPORT INFORMATION
  Report Type: Spontaneous
  Country: IT (occurrence: IT)
  Receive Date: 20240916
  Receipt Date: 20240916
  Transmission Date: 20241017
  Serious: Yes (Hospitalization, Other)
  Sender: HIKMA
  Company Number: IT-HIKMA PHARMACEUTICALS-IT-H14001-24-08323

PATIENT
  Age: 20 Year
  Sex: Male

DRUGS (17)
  1. ANAKINRA [Suspect]
     Active Substance: ANAKINRA
     Indication: Still^s disease
     Dosage: 200 MILLIGRAM, QD
     Route: 042
     Dates: start: 2022, end: 2022
  2. ANAKINRA [Suspect]
     Active Substance: ANAKINRA
     Indication: Haemophagocytic lymphohistiocytosis
     Dosage: 400 MILLIGRAM, QD, RE-STARTED
     Route: 042
     Dates: start: 2022, end: 2022
  3. BARICITINIB [Suspect]
     Active Substance: BARICITINIB
     Indication: Still^s disease
     Dosage: 4 MILLIGRAM, QD
     Route: 048
     Dates: start: 202007, end: 202202
  4. BARICITINIB [Suspect]
     Active Substance: BARICITINIB
     Dosage: DOSE INCREASED
     Route: 048
     Dates: start: 202202, end: 202206
  5. CANAKINUMAB [Suspect]
     Active Substance: CANAKINUMAB
     Indication: Haemophagocytic lymphohistiocytosis
     Dosage: 300 MILLIGRAM
     Route: 058
     Dates: start: 2022
  6. CANAKINUMAB [Suspect]
     Active Substance: CANAKINUMAB
     Indication: Still^s disease
  7. CYCLOSPORINE [Suspect]
     Active Substance: CYCLOSPORINE
     Indication: Haemophagocytic lymphohistiocytosis
     Dosage: 75 MILLIGRAM, Q12H
     Route: 048
     Dates: start: 2022, end: 2022
  8. CYCLOSPORINE [Suspect]
     Active Substance: CYCLOSPORINE
     Indication: Still^s disease
     Dosage: UNK
     Route: 042
     Dates: start: 2022
  9. ECULIZUMAB [Suspect]
     Active Substance: ECULIZUMAB
     Indication: Thrombotic microangiopathy
     Dosage: UNK
     Route: 065
     Dates: start: 2022
  10. METHOTREXATE [Suspect]
     Active Substance: METHOTREXATE
     Indication: Still^s disease
     Dosage: 15 MILLIGRAM, WEEKLY
     Route: 058
     Dates: start: 202007
  11. METHYLPREDNISOLONE [Suspect]
     Active Substance: METHYLPREDNISOLONE
     Indication: Haemophagocytic lymphohistiocytosis
     Dosage: 1 GRAM, QD
     Route: 042
     Dates: start: 2022, end: 2022
  12. METHYLPREDNISOLONE [Suspect]
     Active Substance: METHYLPREDNISOLONE
     Dosage: 30 MILLIGRAM, Q8H
     Route: 042
     Dates: start: 2022
  13. METHYLPREDNISOLONE [Suspect]
     Active Substance: METHYLPREDNISOLONE
     Indication: Still^s disease
     Dosage: UNK
     Route: 042
     Dates: start: 202202, end: 2022
  14. PREDNISONE [Suspect]
     Active Substance: PREDNISONE
     Indication: Still^s disease
     Dosage: 5 MILLIGRAM, QD, 0,08 MG/KG/DAY
     Route: 048
     Dates: start: 202007
  15. ENOXAPARIN [Concomitant]
     Active Substance: ENOXAPARIN
     Indication: Prophylaxis
     Dosage: UNK
     Route: 065
     Dates: start: 202203
  16. NIRMATRELVIR [Concomitant]
     Active Substance: NIRMATRELVIR
     Indication: COVID-19
     Dosage: UNK
     Route: 065
     Dates: start: 202203
  17. RITONAVIR [Concomitant]
     Active Substance: RITONAVIR
     Indication: COVID-19
     Dosage: UNK
     Route: 065
     Dates: start: 202203

REACTIONS (8)
  - Spinal fracture [Unknown]
  - Varicella zoster virus infection [Unknown]
  - Oesophageal candidiasis [Recovered/Resolved]
  - Cytomegalovirus infection reactivation [Unknown]
  - Infection reactivation [Unknown]
  - Pseudomonal sepsis [Unknown]
  - Pneumocystis jirovecii pneumonia [Unknown]
  - Osteoporosis [Unknown]

NARRATIVE: CASE EVENT DATE: 20220101
